FAERS Safety Report 17946817 (Version 2)
Quarter: 2020Q3

REPORT INFORMATION
  Report Type: Report from Study
  Country: US (occurrence: US)
  Receive Date: 20200626
  Receipt Date: 20200701
  Transmission Date: 20201103
  Serious: Yes (Disabling, Other)
  Sender: FDA-Public Use
  Company Number: US-HORIZON-KRY-0847-2020

PATIENT
  Age: 50 Year
  Sex: Male

DRUGS (4)
  1. METHOTREXATE. [Concomitant]
     Active Substance: METHOTREXATE
  2. PREDNISONE. [Concomitant]
     Active Substance: PREDNISONE
  3. KRYSTEXXA [Suspect]
     Active Substance: PEGLOTICASE
     Indication: PRODUCT USED FOR UNKNOWN INDICATION
  4. RINVOQ [Concomitant]
     Active Substance: UPADACITINIB

REACTIONS (7)
  - Gait inability [Unknown]
  - Dizziness postural [Recovered/Resolved]
  - Pain [Unknown]
  - Heart rate increased [Recovering/Resolving]
  - Loss of consciousness [Recovered/Resolved]
  - Exposure to SARS-CoV-2 [Unknown]
  - Blood pressure decreased [Recovered/Resolved]

NARRATIVE: CASE EVENT DATE: 202006
